FAERS Safety Report 21022961 (Version 4)
Quarter: 2023Q1

REPORT INFORMATION
  Report Type: Report from Study
  Country: US (occurrence: US)
  Receive Date: 20220629
  Receipt Date: 20230317
  Transmission Date: 20230418
  Serious: Yes (Hospitalization)
  Sender: FDA-Public Use
  Company Number: US-KARYOPHARM-2022KPT000721

PATIENT
  Age: 74 Year
  Sex: Male
  Weight: 46 kg

DRUGS (8)
  1. SELINEXOR [Suspect]
     Active Substance: SELINEXOR
     Indication: Myelofibrosis
     Dosage: 80 MG, WEEKLY
     Route: 048
     Dates: start: 20220608, end: 20220614
  2. DEFERASIROX [Concomitant]
     Active Substance: DEFERASIROX
     Indication: Iron overload
     Dosage: 360 MG, QD
     Route: 048
     Dates: start: 20210423
  3. OLANZAPINE [Concomitant]
     Active Substance: OLANZAPINE
     Indication: Prophylaxis of nausea and vomiting
     Dosage: 5 MG, DAYS 1-3 OF TREATMENT AND AS NEEDED AT BEDTIME
     Route: 048
     Dates: start: 20220102
  4. ONDANSETRON [Concomitant]
     Active Substance: ONDANSETRON
     Indication: Prophylaxis of nausea and vomiting
     Dosage: 8 MG, DAYS 1-3 OF TREATMENT
     Route: 048
     Dates: start: 20190107
  5. RANITIDINE [Concomitant]
     Active Substance: RANITIDINE
     Indication: Rhinitis allergic
     Dosage: 150 MG, QD
     Route: 048
     Dates: start: 20130313
  6. ROSUVASTATIN [Concomitant]
     Active Substance: ROSUVASTATIN
     Indication: Type V hyperlipidaemia
     Dosage: 10 MG, QD
     Route: 048
     Dates: start: 20130313
  7. SENOKOT [Concomitant]
     Active Substance: SENNOSIDES
     Indication: Constipation
     Dosage: 8.6 MG, PRN
     Route: 048
     Dates: start: 20220105
  8. REMERON [Concomitant]
     Active Substance: MIRTAZAPINE
     Indication: Decreased appetite
     Dosage: 15 MG, QD
     Route: 048
     Dates: start: 20220609

REACTIONS (1)
  - Confusional state [Recovered/Resolved]

NARRATIVE: CASE EVENT DATE: 20220616
